FAERS Safety Report 5284602-9 (Version None)
Quarter: 2007Q2

REPORT INFORMATION
  Report Type: 
  Country: None (occurrence: None)
  Receive Date: 20070403
  Receipt Date: 20070323
  Transmission Date: 20071010
  Serious: Yes (Hospitalization, Other)
  Sender: FDA-Public Use
  Company Number: GB-JNJFOC-20070306243

PATIENT
  Age: 10 Year
  Sex: Male

DRUGS (2)
  1. CONCERTA [Suspect]
     Route: 065
  2. CONCERTA [Suspect]
     Indication: DRUG USE FOR UNKNOWN INDICATION
     Dosage: 10-12 TABLETS
     Route: 065

REACTIONS (2)
  - OVERDOSE [None]
  - STOMATITIS [None]
